FAERS Safety Report 9131862 (Version 1)
Quarter: 2013Q1

REPORT INFORMATION
  Report Type: Spontaneous
  Country: US (occurrence: US)
  Receive Date: 20130301
  Receipt Date: 20130301
  Transmission Date: 20140127
  Serious: Yes (Other)
  Sender: FDA-Public Use
  Company Number: US-ELI_LILLY_AND_COMPANY-US201302007799

PATIENT
  Age: 67 Year
  Sex: Male
  Weight: 98.87 kg

DRUGS (4)
  1. BYETTA [Suspect]
     Indication: TYPE 2 DIABETES MELLITUS
     Dosage: 5 UG, BID
     Route: 058
     Dates: start: 2009, end: 201209
  2. VICTOZA [Concomitant]
     Indication: TYPE 2 DIABETES MELLITUS
     Dosage: UNK, QD
     Route: 058
     Dates: start: 201209
  3. LANTUS [Concomitant]
     Indication: TYPE 2 DIABETES MELLITUS
     Dosage: 55 U, EACH EVENING
     Route: 058
  4. SYNTHROID [Concomitant]
     Indication: THYROIDECTOMY
     Dosage: 137 UG, QD
     Route: 048
     Dates: start: 201211

REACTIONS (1)
  - Thyroid cancer [Unknown]
